FAERS Safety Report 9444706 (Version 1)
Quarter: 2013Q3

REPORT INFORMATION
  Report Type: Spontaneous
  Country: GB (occurrence: GB)
  Receive Date: 20130807
  Receipt Date: 20130807
  Transmission Date: 20140515
  Serious: Yes (Disabling)
  Sender: FDA-Public Use
  Company Number: GB-TEVA-423506ISR

PATIENT
  Age: 86 Year
  Sex: Female
  Weight: 85 kg

DRUGS (9)
  1. TRAMADOL [Suspect]
     Dates: start: 20130705
  2. METHYLPREDNISOLONE ACETATE [Concomitant]
     Dates: start: 20130301, end: 20130629
  3. PREGABALIN [Concomitant]
     Dates: start: 20130320
  4. LOSARTAN [Concomitant]
     Dates: start: 20130320
  5. BENDROFLUMETHIAZIDE [Concomitant]
     Dates: start: 20130320
  6. PARACETAMOL [Concomitant]
     Dates: start: 20130517, end: 20130611
  7. DOCUSATE SODIUM [Concomitant]
     Dates: start: 20130517, end: 20130611
  8. OTOMIZE [Concomitant]
     Dates: start: 20130614, end: 20130712
  9. AMOXICILLIN [Concomitant]
     Dates: start: 20130626, end: 20130703

REACTIONS (2)
  - Dizziness [Recovered/Resolved]
  - Fall [Recovered/Resolved]
